FAERS Safety Report 5313498-1 (Version None)
Quarter: 2007Q2

REPORT INFORMATION
  Report Type: 
  Country: None (occurrence: None)
  Receive Date: 20070424
  Receipt Date: 20070409
  Transmission Date: 20071010
  Serious: Yes (Other)
  Sender: FDA-Public Use
  Company Number: 16281

PATIENT
  Age: 27 Year
  Sex: Male

DRUGS (16)
  1. BLEOMYCIN [Suspect]
     Indication: TESTICULAR GERM CELL CANCER
     Dates: start: 20050501, end: 20050801
  2. OXYGEN [Suspect]
     Indication: OXYGEN SUPPLEMENTATION
  3. OXYGEN [Suspect]
     Indication: OXYGEN SUPPLEMENTATION
     Dosage: 0.21 IH
     Route: 055
  4. OXYGEN [Interacting]
     Indication: OXYGEN SUPPLEMENTATION
     Dosage: 1 IH
     Route: 055
  5. ETOPOSIDE [Concomitant]
  6. CISPLATIN [Concomitant]
  7. PACLITAXEL [Concomitant]
  8. IFOSFAMIDE [Concomitant]
  9. WHOLE BLOOD [Concomitant]
  10. FLUID [Concomitant]
  11. NORADRENALINE [Concomitant]
  12. METARAMINOL [Concomitant]
  13. NITROGLYCERIN [Concomitant]
  14. HYDROCORTISONE [Concomitant]
  15. VASOPRESSIN [Concomitant]
  16. PIPERACILLIN AND TAZOBACTAM [Concomitant]

REACTIONS (10)
  - ACUTE RESPIRATORY DISTRESS SYNDROME [None]
  - CREATINE URINE INCREASED [None]
  - GENERAL PHYSICAL HEALTH DETERIORATION [None]
  - LUNG INFILTRATION [None]
  - PNEUMONITIS [None]
  - REPERFUSION INJURY [None]
  - RESPIRATORY FAILURE [None]
  - SHOCK [None]
  - TUMOUR MARKER INCREASED [None]
  - URINE OUTPUT DECREASED [None]
